FAERS Safety Report 18594759 (Version 1)
Quarter: 2020Q4

REPORT INFORMATION
  Report Type: Spontaneous
  Country: US (occurrence: US)
  Receive Date: 20201208
  Receipt Date: 20201208
  Transmission Date: 20210114
  Serious: Yes (Disabling)
  Sender: FDA-Public Use
  Company Number: None

PATIENT
  Age: 42 Year
  Sex: Female
  Weight: 62.1 kg

DRUGS (1)
  1. BOTOX [Suspect]
     Active Substance: ONABOTULINUMTOXINA
     Indication: HYPERHIDROSIS
     Route: 058

REACTIONS (34)
  - Systemic infection [None]
  - Urinary tract infection [None]
  - Alopecia [None]
  - Vomiting [None]
  - Heart rate irregular [None]
  - Muscle atrophy [None]
  - Dry skin [None]
  - Anosmia [None]
  - Insomnia [None]
  - Foaming at mouth [None]
  - Arthralgia [None]
  - Dry mouth [None]
  - Headache [None]
  - Dehydration [None]
  - Food poisoning [None]
  - Ageusia [None]
  - Pain [None]
  - Erythema [None]
  - Dyspnoea [None]
  - Head discomfort [None]
  - Confusional state [None]
  - Eye movement disorder [None]
  - Abdominal pain upper [None]
  - Feeling abnormal [None]
  - Rash [None]
  - Gastrointestinal disorder [None]
  - Hepatic pain [None]
  - Blood bilirubin increased [None]
  - Gait inability [None]
  - Breast disorder [None]
  - Anxiety [None]
  - Secretion discharge [None]
  - Mood swings [None]
  - Muscle injury [None]
